FAERS Safety Report 18070220 (Version 1)
Quarter: 2020Q3

REPORT INFORMATION
  Report Type: Spontaneous
  Country: GB (occurrence: GB)
  Receive Date: 20200727
  Receipt Date: 20200727
  Transmission Date: 20201103
  Serious: Yes (Disabling)
  Sender: FDA-Public Use
  Company Number: GB-009507513-2007GBR008083

PATIENT
  Age: 72 Year
  Sex: Female

DRUGS (1)
  1. PEMBROLIZUMAB. [Suspect]
     Active Substance: PEMBROLIZUMAB
     Indication: LUNG CARCINOMA CELL TYPE UNSPECIFIED RECURRENT
     Dates: start: 20181125, end: 20200527

REACTIONS (2)
  - Blindness [Recovered/Resolved with Sequelae]
  - Corneal graft rejection [Recovered/Resolved with Sequelae]

NARRATIVE: CASE EVENT DATE: 20200522
